FAERS Safety Report 14521583 (Version 1)
Quarter: 2018Q1

REPORT INFORMATION
  Report Type: Spontaneous
  Country: AT (occurrence: AT)
  Receive Date: 20180212
  Receipt Date: 20180212
  Transmission Date: 20180509
  Serious: Yes (Other)
  Sender: FDA-Public Use
  Company Number: AT-TEVA-2018-AT-856221

PATIENT
  Age: 38 Year
  Sex: Female

DRUGS (14)
  1. OLEOVITD3 [Concomitant]
     Dates: start: 20150626, end: 20150626
  2. OLEOVITD3 [Concomitant]
     Dates: start: 20150731, end: 20150731
  3. TRITTICO RETARD [Concomitant]
     Active Substance: TRAZODONE HYDROCHLORIDE
     Route: 048
     Dates: start: 2014, end: 20150709
  4. OLEOVITD3 [Concomitant]
     Dates: start: 20150703, end: 20150703
  5. CITALOPRAM [Suspect]
     Active Substance: CITALOPRAM HYDROBROMIDE
     Route: 048
     Dates: start: 2014, end: 20150624
  6. OLEOVITD3 [Concomitant]
     Dates: start: 20150717, end: 20150717
  7. TRITTICO RETARD [Concomitant]
     Active Substance: TRAZODONE HYDROCHLORIDE
     Route: 048
     Dates: start: 20150710, end: 20150719
  8. INDERAL [Concomitant]
     Active Substance: PROPRANOLOL HYDROCHLORIDE
     Dates: start: 20150707, end: 20150707
  9. HOVA [Concomitant]
     Active Substance: HERBALS\HOPS\VALERIAN
  10. OLEOVITD3 [Concomitant]
     Dates: start: 20150724, end: 20150724
  11. PARKEMED [Concomitant]
     Active Substance: MEFENAMIC ACID
     Dates: start: 20150626, end: 20150626
  12. CITALOPRAM [Suspect]
     Active Substance: CITALOPRAM HYDROBROMIDE
     Route: 048
     Dates: start: 20150625, end: 20150709
  13. TRITTICO RETARD [Concomitant]
     Active Substance: TRAZODONE HYDROCHLORIDE
     Route: 048
     Dates: start: 20150720
  14. INDERAL [Concomitant]
     Active Substance: PROPRANOLOL HYDROCHLORIDE
     Dates: start: 20150706, end: 20150706

REACTIONS (1)
  - Food craving [Recovered/Resolved]
